FAERS Safety Report 15309611 (Version 1)
Quarter: 2018Q3

REPORT INFORMATION
  Report Type: Spontaneous
  Country: US (occurrence: US)
  Receive Date: 20180811
  Receipt Date: 20180811
  Transmission Date: 20181010
  Serious: Yes (Disabling)
  Sender: FDA-Public Use
  Company Number: None

PATIENT
  Age: 43 Year
  Sex: Female
  Weight: 68.95 kg

DRUGS (1)
  1. MIRENA [Suspect]
     Active Substance: LEVONORGESTREL
     Dates: start: 20131202, end: 20171103

REACTIONS (8)
  - Weight increased [None]
  - Panic attack [None]
  - Anxiety [None]
  - Visual acuity reduced [None]
  - Fatigue [None]
  - Uterine pain [None]
  - Ovarian cyst [None]
  - Arthralgia [None]

NARRATIVE: CASE EVENT DATE: 20161116
